FAERS Safety Report 8302370-0 (Version None)
Quarter: 2012Q2

REPORT INFORMATION
  Report Type: 
  Country: None (occurrence: None)
  Receive Date: 20120420
  Receipt Date: 20120411
  Transmission Date: 20120825
  Serious: Yes (Other)
  Sender: FDA-Public Use
  Company Number: GB-ASTRAZENECA-2012SE23730

PATIENT
  Age: 60 Year
  Sex: Female
  Weight: 60 kg

DRUGS (5)
  1. ROSUVASTATIN [Concomitant]
     Route: 048
  2. BISOPROLOL FUMARATE [Concomitant]
  3. FENOFIBRATE [Concomitant]
  4. ASPIRIN [Concomitant]
  5. BRILIQUE [Suspect]
     Route: 048
     Dates: start: 20120223, end: 20120226

REACTIONS (4)
  - ABDOMINAL PAIN [None]
  - GASTROINTESTINAL DISORDER [None]
  - NAUSEA [None]
  - VOMITING [None]
